FAERS Safety Report 4700604-2 (Version None)
Quarter: 2005Q2

REPORT INFORMATION
  Report Type: 
  Country: None (occurrence: None)
  Receive Date: 20050627
  Receipt Date: 20050615
  Transmission Date: 20051028
  Serious: Yes (Other)
  Sender: FDA-Public Use
  Company Number: 200515044US

PATIENT
  Sex: Male

DRUGS (2)
  1. LOVENOX [Suspect]
     Indication: THROMBOSIS PROPHYLAXIS
     Dosage: DOSE: UNK
     Dates: start: 20050602
  2. CORTICOSTEROIDS [Concomitant]
     Dosage: DOSE: UNK

REACTIONS (2)
  - CONFUSIONAL STATE [None]
  - LETHARGY [None]
